FAERS Safety Report 21925478 (Version 1)
Quarter: 2023Q1

REPORT INFORMATION
  Report Type: Spontaneous
  Country: None (occurrence: PL)
  Receive Date: 20230130
  Receipt Date: 20230130
  Transmission Date: 20230418
  Serious: Yes (Hospitalization, Other)
  Sender: FDA-Public Use
  Company Number: PL-Therakind Limited-2137227

PATIENT
  Age: 11 Year
  Sex: Female

DRUGS (1)
  1. METHOTREXATE [Suspect]
     Active Substance: METHOTREXATE
     Indication: Prophylaxis against transplant rejection

REACTIONS (4)
  - Chronic kidney disease [Unknown]
  - Toxicity to various agents [Unknown]
  - Renal failure [Unknown]
  - Product use in unapproved indication [Unknown]
